FAERS Safety Report 6273555-2 (Version None)
Quarter: 2009Q3

REPORT INFORMATION
  Report Type: 
  Country: None (occurrence: None)
  Receive Date: 20090713
  Receipt Date: 20080825
  Transmission Date: 20100115
  Serious: Yes (Hospitalization)
  Sender: FDA-Public Use
  Company Number: 582594

PATIENT
  Age: 63 Year
  Sex: Female

DRUGS (8)
  1. BONIVA [Suspect]
     Indication: OSTEOPOROSIS
     Dosage: 1 PER MONTH
     Dates: start: 20080721
  2. TOPROL-XL [Concomitant]
  3. OXYCONTIN [Concomitant]
  4. PERCOCET (OCYCODONE/PARACETAMOL) [Concomitant]
  5. METOPROLOL SUCCINATE [Concomitant]
  6. CALCIUM (CALCIUM) [Concomitant]
  7. VITAMIN (VITAMIN NOS) [Concomitant]
  8. OXYCODONE HCL [Concomitant]

REACTIONS (5)
  - INFECTION [None]
  - JOINT SWELLING [None]
  - OEDEMA PERIPHERAL [None]
  - OROPHARYNGEAL PAIN [None]
  - URINARY TRACT INFECTION [None]
